FAERS Safety Report 6508294-3 (Version None)
Quarter: 2009Q4

REPORT INFORMATION
  Report Type: 
  Country: None (occurrence: None)
  Receive Date: 20091221
  Receipt Date: 20080930
  Transmission Date: 20100525
  Serious: No
  Sender: FDA-Public Use
  Company Number: US-ASTRAZENECA-2008UW21051

PATIENT
  Age: 60 Year
  Sex: Female
  Weight: 53.5 kg

DRUGS (3)
  1. CRESTOR [Suspect]
     Indication: HYPERCHOLESTEROLAEMIA
     Route: 048
     Dates: start: 20080601
  2. SYNTHROID [Concomitant]
  3. ATIVAN [Concomitant]

REACTIONS (2)
  - ALOPECIA [None]
  - HOT FLUSH [None]
